FAERS Safety Report 12787901 (Version 1)
Quarter: 2016Q3

REPORT INFORMATION
  Report Type: Spontaneous
  Country: US (occurrence: US)
  Receive Date: 20160928
  Receipt Date: 20160928
  Transmission Date: 20161109
  Serious: Yes (Other)
  Sender: FDA-Public Use
  Company Number: None

PATIENT
  Age: 40 Year
  Sex: Female

DRUGS (1)
  1. SUBOXONE [Suspect]
     Active Substance: BUPRENORPHINE HYDROCHLORIDE\NALOXONE HYDROCHLORIDE
     Indication: PSORIASIS
     Dosage: 4/1 MG DAILY SC
     Route: 058

REACTIONS (2)
  - Joint swelling [None]
  - Glossitis [None]

NARRATIVE: CASE EVENT DATE: 20160905
